FAERS Safety Report 14822078 (Version 1)
Quarter: 2018Q2

REPORT INFORMATION
  Report Type: Spontaneous
  Country: CN (occurrence: CN)
  Receive Date: 20180427
  Receipt Date: 20180427
  Transmission Date: 20180711
  Serious: Yes (Death, Other)
  Sender: FDA-Public Use
  Company Number: CN-GILEAD-2018-0335113

PATIENT
  Sex: Male

DRUGS (1)
  1. VIREAD [Suspect]
     Active Substance: TENOFOVIR DISOPROXIL FUMARATE
     Indication: CHRONIC HEPATITIS B
     Dosage: 1 TABLET, QD
     Route: 048
     Dates: start: 2016

REACTIONS (2)
  - Hepatic cancer [Fatal]
  - Hepatitis B virus test positive [Unknown]

NARRATIVE: CASE EVENT DATE: 2017
